FAERS Safety Report 4580788-X (Version None)
Quarter: 2005Q1

REPORT INFORMATION
  Report Type: 
  Country: None (occurrence: None)
  Receive Date: 20050127
  Receipt Date: 20040819
  Transmission Date: 20050727
  Serious: No
  Sender: FDA-Public Use
  Company Number: USA040875964

PATIENT
  Age: 54 Year
  Sex: Female
  Weight: 59 kg

DRUGS (2)
  1. STRATTERA [Suspect]
     Indication: ATTENTION DEFICIT/HYPERACTIVITY DISORDER
     Dosage: 40 MG/1 DAY
     Dates: start: 20040803
  2. VITAMINS [Concomitant]

REACTIONS (5)
  - ANOREXIA [None]
  - CHILLS [None]
  - DRY MOUTH [None]
  - FEELING JITTERY [None]
  - INSOMNIA [None]
